FAERS Safety Report 7474891-4 (Version None)
Quarter: 2011Q2

REPORT INFORMATION
  Report Type: 
  Country: None (occurrence: None)
  Receive Date: 20110512
  Receipt Date: 20110502
  Transmission Date: 20111010
  Serious: Yes (Hospitalization)
  Sender: FDA-Public Use
  Company Number: KR-BAYER-2011-014615

PATIENT
  Age: 53 Year
  Sex: Male
  Weight: 59 kg

DRUGS (28)
  1. MEK INHIBITOR (DIHYDROXYPROP-DIFLU-METHOXYPHEN-CYCLOPROPA-SULFAMI) [Suspect]
     Dosage: 60 MG, BID
     Route: 048
     Dates: start: 20110227, end: 20110301
  2. NEXAVAR [Suspect]
     Indication: HEPATIC NEOPLASM MALIGNANT
     Dosage: 200 MG AM, 400 MG PM = 600 MG
     Route: 048
     Dates: start: 20110207, end: 20110212
  3. ADALAT [Concomitant]
     Indication: HYPERTENSION
     Dosage: 60 MG, UNK
     Route: 048
     Dates: start: 20100605
  4. CELEBREX [Concomitant]
     Indication: NEUROPATHY PERIPHERAL
     Dosage: 200 MG, UNK
     Route: 048
     Dates: start: 20100608
  5. PHENTRAMINE [Concomitant]
     Dosage: 1000 MG, UNK
     Route: 042
     Dates: start: 20110216, end: 20110216
  6. PHENTRAMINE [Concomitant]
     Indication: PREMEDICATION
     Dosage: 4 MG, UNK
     Route: 042
     Dates: start: 20110215, end: 20110215
  7. MEK INHIBITOR (DIHYDROXYPROP-DIFLU-METHOXYPHEN-CYCLOPROPA-SULFAMI) [Suspect]
     Indication: HEPATIC NEOPLASM MALIGNANT
     Dosage: 50 MG, BID
     Route: 048
     Dates: start: 20110207, end: 20110212
  8. MEK INHIBITOR (DIHYDROXYPROP-DIFLU-METHOXYPHEN-CYCLOPROPA-SULFAMI) [Suspect]
     Dosage: 30 MG, BID
     Route: 048
     Dates: start: 20110314, end: 20110428
  9. LANSOPRAZOLE [Concomitant]
     Dosage: 15 ML, UNK
     Route: 048
     Dates: start: 20110217
  10. NEURONTIN [Concomitant]
  11. ADELAVIN [Concomitant]
     Indication: SUPPLEMENTATION THERAPY
     Dosage: 2 ML, UNK
     Route: 042
     Dates: start: 20110214, end: 20110216
  12. CEFTRIAXONE [Concomitant]
     Indication: PYREXIA
     Dosage: 2 G, UNK
     Route: 042
     Dates: start: 20110214, end: 20110219
  13. PHENTRAMINE [Concomitant]
     Dosage: 1440 ML, UNK
     Dates: start: 20110216, end: 20110217
  14. K40NS500 [Concomitant]
     Indication: MEDICAL DIET
     Dosage: 500 ML, UNK
     Route: 042
     Dates: start: 20110216, end: 20110217
  15. DILATREND [Concomitant]
     Indication: HYPERTENSION
     Dosage: 25 MG, UNK
     Route: 048
     Dates: start: 20100606
  16. PHENTRAMINE [Concomitant]
     Dosage: 4 MG, UNK
     Route: 042
     Dates: start: 20110216, end: 20110216
  17. PHENTRAMINE [Concomitant]
     Dosage: 150000 U, UNK
     Dates: start: 20110215, end: 20110220
  18. NEURONTIN [Concomitant]
     Indication: NEUROPATHY PERIPHERAL
     Dosage: 30 MG, UNK
     Route: 048
     Dates: start: 20101115
  19. MUCOSTEN [Concomitant]
     Dosage: 1200 MG, UNK
     Route: 042
     Dates: start: 20110214, end: 20110216
  20. PHENTRAMINE [Concomitant]
     Dosage: UNK
     Route: 048
     Dates: start: 20110217
  21. LASIX [Concomitant]
     Indication: PREMEDICATION
     Dosage: 20 MG, UNK
     Route: 042
     Dates: start: 20110215, end: 20110215
  22. CLINIMIX 2.75/10 SULFITE FREE IN DEXTROSE 10% [Concomitant]
     Indication: MEDICAL DIET
     Dosage: 1500 ML, UNK
     Route: 042
     Dates: start: 20110214, end: 20110216
  23. NEXAVAR [Suspect]
     Dosage: 400 MG, QD
     Route: 048
     Dates: start: 20110227, end: 20110301
  24. LOPERAMIDE [Concomitant]
     Indication: DIARRHOEA
     Dosage: 2 MG, PRN
     Route: 048
     Dates: start: 20110201
  25. LASIX [Concomitant]
     Dosage: 20 MG, UNK
     Route: 042
     Dates: start: 20110216, end: 20110216
  26. FURTMAN [Concomitant]
     Indication: MEDICAL DIET
     Dosage: 0.2 ML, UNK
     Route: 042
     Dates: start: 20110217, end: 20110218
  27. NEXAVAR [Suspect]
     Dosage: 400 MG, QD
     Route: 048
     Dates: start: 20110314, end: 20110428
  28. LANSOPRAZOLE [Concomitant]
     Indication: GASTROOESOPHAGEAL REFLUX DISEASE
     Dosage: 30 MG, UNK
     Route: 048
     Dates: start: 20100604

REACTIONS (2)
  - UPPER GASTROINTESTINAL HAEMORRHAGE [None]
  - DUODENAL ULCER [None]
